FAERS Safety Report 5047100-3 (Version None)
Quarter: 2006Q3

REPORT INFORMATION
  Report Type: 
  Country: None (occurrence: None)
  Receive Date: 20060703
  Receipt Date: 20060620
  Transmission Date: 20061208
  Serious: Yes (Other)
  Sender: FDA-Public Use
  Company Number: 2006004942

PATIENT
  Sex: Male
  Weight: 32.659 kg

DRUGS (2)
  1. VIAGRA [Suspect]
     Indication: ERECTILE DYSFUNCTION
     Dosage: 50 (50 MG, AS NECESSARY),
  2. OXYCONTIN [Concomitant]

REACTIONS (2)
  - DRUG INEFFECTIVE [None]
  - NARCOLEPSY [None]
